FAERS Safety Report 13012837 (Version 1)
Quarter: 2016Q4

REPORT INFORMATION
  Report Type: Spontaneous
  Country: IT (occurrence: IT)
  Receive Date: 20161209
  Receipt Date: 20161209
  Transmission Date: 20170207
  Serious: Yes (Other)
  Sender: FDA-Public Use
  Company Number: IT-PFIZER INC-2016569560

PATIENT
  Age: 67 Year
  Sex: Male

DRUGS (6)
  1. DETRUSITOL [Suspect]
     Active Substance: TOLTERODINE TARTRATE
     Indication: NEUROGENIC BLADDER
     Dosage: 4 MG, DAILY
     Route: 048
     Dates: start: 20161115
  2. DITROPAN [Suspect]
     Active Substance: OXYBUTYNIN CHLORIDE
     Indication: NEUROGENIC BLADDER
     Dosage: 5 MG, 3X/DAY
     Route: 048
     Dates: start: 20160625, end: 20160907
  3. LIORESAL [Concomitant]
     Active Substance: BACLOFEN
     Dosage: 50 MG, UNK
     Route: 048
  4. PURSENNID /00142207/ [Concomitant]
     Active Substance: SENNOSIDES A AND B
     Dosage: 24 MG, UNK
     Route: 048
  5. BOTOX [Concomitant]
     Active Substance: ONABOTULINUMTOXINA
     Dosage: UNK
     Route: 043
  6. BETMIGA [Suspect]
     Active Substance: MIRABEGRON
     Indication: NEUROGENIC BLADDER
     Dosage: 50 MG, DAILY
     Route: 048
     Dates: start: 20161109, end: 20161122

REACTIONS (5)
  - Dry mouth [Recovering/Resolving]
  - Tachycardia [Recovering/Resolving]
  - Syncope [Recovering/Resolving]
  - Glossitis [Recovering/Resolving]
  - Xerophthalmia [Recovering/Resolving]

NARRATIVE: CASE EVENT DATE: 20160705
